FAERS Safety Report 17880759 (Version 1)
Quarter: 2020Q2

REPORT INFORMATION
  Report Type: Spontaneous
  Country: ES (occurrence: ES)
  Receive Date: 20200610
  Receipt Date: 20200610
  Transmission Date: 20200714
  Serious: Yes (Hospitalization)
  Sender: FDA-Public Use
  Company Number: ES-ROCHE-2618227

PATIENT
  Age: 45 Year
  Sex: Male

DRUGS (5)
  1. XOLAIR [Suspect]
     Active Substance: OMALIZUMAB
     Dosage: 150 MG
     Route: 058
     Dates: start: 20200331, end: 20200406
  2. XOLAIR [Suspect]
     Active Substance: OMALIZUMAB
     Indication: ASTHMA
     Dosage: 150 MG
     Route: 058
     Dates: start: 20190408
  3. XOLAIR [Suspect]
     Active Substance: OMALIZUMAB
     Dosage: 150 MG
     Route: 058
     Dates: start: 20200317
  4. XOLAIR [Suspect]
     Active Substance: OMALIZUMAB
     Dosage: 150 MG
     Route: 058
     Dates: start: 20200221
  5. XOLAIR [Suspect]
     Active Substance: OMALIZUMAB
     Dosage: 150 MG
     Route: 058
     Dates: start: 20200128

REACTIONS (2)
  - Condition aggravated [Not Recovered/Not Resolved]
  - Acute disseminated encephalomyelitis [Unknown]

NARRATIVE: CASE EVENT DATE: 202003
